FAERS Safety Report 7291168-0 (Version None)
Quarter: 2011Q1

REPORT INFORMATION
  Report Type: 
  Country: None (occurrence: None)
  Receive Date: 20110201
  Receipt Date: 20110125
  Transmission Date: 20110831
  Serious: Yes (Hospitalization)
  Sender: FDA-Public Use
  Company Number: CAP11000023

PATIENT
  Age: 49 Year
  Sex: Female
  Weight: 63 kg

DRUGS (7)
  1. MULTIVITAMIN /00831701/ (VITAMIN NOS) [Concomitant]
  2. FLAXSEED NOIL (LINUM USITATISSIMUM SEED OIL) [Concomitant]
  3. ERGOCALCIFEROL [Concomitant]
  4. VITAMIN B-12 [Concomitant]
  5. ACTONEL [Suspect]
     Dosage: 150 MG ONCE ONLY, ORAL
     Route: 048
  6. CALCIUM (CALCIUM) [Concomitant]
  7. GLUCOSAMINE (GLUCOSAMINE) [Concomitant]

REACTIONS (4)
  - C-REACTIVE PROTEIN INCREASED [None]
  - BACK PAIN [None]
  - CHEST PAIN [None]
  - ELECTROCARDIOGRAM ST SEGMENT DEPRESSION [None]
